FAERS Safety Report 8518082-4 (Version None)
Quarter: 2012Q3

REPORT INFORMATION
  Report Type: 
  Country: None (occurrence: None)
  Receive Date: 20120718
  Receipt Date: 20111028
  Transmission Date: 20120928
  Serious: Yes (Hospitalization)
  Sender: FDA-Public Use
  Company Number: US-BRISTOL-MYERS SQUIBB COMPANY-16042616

PATIENT
  Age: 69 Year
  Sex: Female
  Weight: 111 kg

DRUGS (1)
  1. COUMADIN [Suspect]
     Dates: start: 20110818

REACTIONS (1)
  - INTERNATIONAL NORMALISED RATIO INCREASED [None]
